FAERS Safety Report 19962447 (Version 5)
Quarter: 2022Q3

REPORT INFORMATION
  Report Type: Report from Study
  Country: CA (occurrence: CA)
  Receive Date: 20211018
  Receipt Date: 20220720
  Transmission Date: 20221027
  Serious: Yes (Hospitalization, Other)
  Sender: FDA-Public Use
  Company Number: CA-ABBVIE-21K-028-4121713-00

PATIENT
  Sex: Female

DRUGS (4)
  1. HUMIRA [Suspect]
     Active Substance: ADALIMUMAB
     Indication: Ankylosing spondylitis
     Route: 058
     Dates: start: 20191024, end: 202108
  2. COVID-19 VACCINE NOS [Suspect]
     Active Substance: COVID-19 VACCINE NOS
     Indication: COVID-19 immunisation
     Route: 030
     Dates: start: 2021, end: 2021
  3. COVID-19 VACCINE NOS [Suspect]
     Active Substance: COVID-19 VACCINE NOS
     Indication: COVID-19 immunisation
     Route: 030
     Dates: start: 2021, end: 2021
  4. VAXZEVRIA [Suspect]
     Active Substance: AZD-1222
     Indication: Product used for unknown indication
     Route: 065

REACTIONS (12)
  - Epidural injection [Unknown]
  - Inflammation [Unknown]
  - Sciatica [Unknown]
  - Pain [Unknown]
  - Inflammation [Unknown]
  - Bronchial disorder [Unknown]
  - Hernia [Unknown]
  - Neuritis [Unknown]
  - Neuritis [Unknown]
  - Bronchial disorder [Unknown]
  - Hernia [Unknown]
  - Drug ineffective [Unknown]
